FAERS Safety Report 5810705-3 (Version None)
Quarter: 2008Q3

REPORT INFORMATION
  Report Type: 
  Country: None (occurrence: None)
  Receive Date: 20080715
  Receipt Date: 20080711
  Transmission Date: 20090109
  Serious: Yes (Hospitalization)
  Sender: FDA-Public Use
  Company Number: US-BOEHRINGER INGELHEIM GMBH, GERMANY-2008-BP-10872BP

PATIENT
  Sex: Male

DRUGS (7)
  1. MICARDIS [Suspect]
     Indication: HYPERTENSION
  2. LANTUS [Concomitant]
     Indication: TYPE 1 DIABETES MELLITUS
  3. BIATA [Concomitant]
     Indication: TYPE 1 DIABETES MELLITUS
  4. DIGOXIN [Concomitant]
     Indication: CARDIAC FAILURE CONGESTIVE
  5. COUMADIN [Concomitant]
     Indication: TRANSIENT ISCHAEMIC ATTACK
  6. COUMADIN [Concomitant]
     Indication: CAROTID ARTERY STENOSIS
  7. OTHER MEDICATIONS [Concomitant]

REACTIONS (1)
  - CEREBROVASCULAR ACCIDENT [None]
